FAERS Safety Report 16483347 (Version 2)
Quarter: 2019Q3

REPORT INFORMATION
  Report Type: Spontaneous
  Country: US (occurrence: US)
  Receive Date: 20190627
  Receipt Date: 20190806
  Transmission Date: 20191004
  Serious: Yes (Hospitalization, Other)
  Sender: FDA-Public Use
  Company Number: US-GLAXOSMITHKLINE-US2019113086

PATIENT
  Sex: Female

DRUGS (3)
  1. SENSODYNE RAPID RELIEF [Suspect]
     Active Substance: STANNOUS FLUORIDE
     Indication: HYPERAESTHESIA TEETH
     Dosage: UNK
  2. PENICILLIN [Suspect]
     Active Substance: PENICILLIN
     Indication: PHARYNGITIS
     Dosage: UNK
  3. SENSODYNE RAPID RELIEF [Suspect]
     Active Substance: STANNOUS FLUORIDE
     Indication: HYPERAESTHESIA TEETH
     Dosage: 1 APPLICATION, BID
     Dates: start: 20190327, end: 20190327

REACTIONS (5)
  - Malaise [Unknown]
  - Sepsis [Recovered/Resolved]
  - Oropharyngeal pain [Recovered/Resolved]
  - Coma [Recovered/Resolved]
  - Pharyngitis streptococcal [Recovered/Resolved]
